FAERS Safety Report 4337436-3 (Version None)
Quarter: 2004Q2

REPORT INFORMATION
  Report Type: 
  Country: None (occurrence: None)
  Receive Date: 20040408
  Receipt Date: 20040326
  Transmission Date: 20050107
  Serious: Yes (Other)
  Sender: FDA-Public Use
  Company Number: US071509

PATIENT
  Age: 49 Year
  Sex: Female

DRUGS (6)
  1. ENBREL [Suspect]
     Indication: RHEUMATOID ARTHRITIS
     Dosage: 25 MG, 2 IN 1 WEEKS, SC
     Route: 058
     Dates: start: 20031224, end: 20040101
  2. LANSOPRAZOLE [Concomitant]
  3. NARATRIPTAN [Concomitant]
  4. ACETAMINOPHEN [Concomitant]
  5. DIHYDROCODEINE [Concomitant]
  6. PROCHLORPERAZINE [Concomitant]

REACTIONS (2)
  - CONDITION AGGRAVATED [None]
  - DEAFNESS [None]
